FAERS Safety Report 21509174 (Version 2)
Quarter: 2022Q4

REPORT INFORMATION
  Report Type: Spontaneous
  Country: US (occurrence: US)
  Receive Date: 20221026
  Receipt Date: 20221207
  Transmission Date: 20230113
  Serious: Yes (Other)
  Sender: FDA-Public Use
  Company Number: US-MYLANLABS-2022M1114979

PATIENT
  Age: 41 Year
  Sex: Female

DRUGS (3)
  1. LIPITOR [Suspect]
     Active Substance: ATORVASTATIN CALCIUM
     Indication: Product used for unknown indication
     Dosage: UNK
     Route: 065
  2. PAXLOVID [Suspect]
     Active Substance: NIRMATRELVIR\RITONAVIR
     Indication: COVID-19
     Dosage: 3 DOSAGE FORM, BID (5 DAYS)
     Route: 048
     Dates: start: 20220808, end: 20220813
  3. LO LOESTRIN FE [Concomitant]
     Active Substance: ETHINYL ESTRADIOL\NORETHINDRONE ACETATE
     Dosage: UNK
     Route: 065

REACTIONS (4)
  - Menstruation irregular [Not Recovered/Not Resolved]
  - Heavy menstrual bleeding [Unknown]
  - Abdominal pain [Unknown]
  - Flank pain [Unknown]

NARRATIVE: CASE EVENT DATE: 20220901
